FAERS Safety Report 8980158 (Version 1)
Quarter: 2012Q4

REPORT INFORMATION
  Report Type: Report from Study
  Country: TR (occurrence: TR)
  Receive Date: 20121221
  Receipt Date: 20121221
  Transmission Date: 20130627
  Serious: Yes (Other)
  Sender: FDA-Public Use
  Company Number: TR-ROCHE-1173079

PATIENT
  Age: 39 Year
  Sex: Male

DRUGS (1)
  1. CAPECITABINE [Suspect]
     Indication: COLON CANCER
     Dosage: 500 mg 4 plus 4
     Route: 048

REACTIONS (1)
  - Colonic obstruction [Not Recovered/Not Resolved]
